FAERS Safety Report 7184244-4 (Version None)
Quarter: 2010Q4

REPORT INFORMATION
  Report Type: 
  Country: None (occurrence: None)
  Receive Date: 20101123
  Receipt Date: 20100806
  Transmission Date: 20110411
  Serious: No
  Sender: FDA-Public Use
  Company Number: 016947

PATIENT
  Sex: Female
  Weight: 80 kg

DRUGS (5)
  1. CIMZIA [Suspect]
     Indication: CROHN'S DISEASE
     Dosage: (400 MG 1X/4 WEEKS SUBCUTANEOUS)
     Route: 058
     Dates: start: 20100301
  2. TRAZODONE HCL [Concomitant]
  3. CYMBALTA [Concomitant]
  4. ZYPREXA [Concomitant]
  5. VITAIN B12 NOS [Concomitant]

REACTIONS (1)
  - SKIN DISCOLOURATION [None]
